FAERS Safety Report 23535968 (Version 1)
Quarter: 2024Q1

REPORT INFORMATION
  Report Type: Spontaneous
  Country: US (occurrence: US)
  Receive Date: 20240219
  Receipt Date: 20240219
  Transmission Date: 20240410
  Serious: No
  Sender: FDA-Public Use
  Company Number: US-AMGEN-USASP2024029544

PATIENT

DRUGS (1)
  1. MVASI [Suspect]
     Active Substance: BEVACIZUMAB-AWWB
     Indication: Product used for unknown indication
     Dosage: 650 MILLIGRAM (REQUESTING-TIMES2 100 MG VIALS, TIME 1 400MG VIAL)
     Route: 065

REACTIONS (1)
  - Neutrophil count decreased [Unknown]
